FAERS Safety Report 10346801 (Version 1)
Quarter: 2014Q3

REPORT INFORMATION
  Report Type: Spontaneous
  Country: CH (occurrence: CH)
  Receive Date: 20140729
  Receipt Date: 20140729
  Transmission Date: 20150326
  Serious: Yes (Other)
  Sender: FDA-Public Use
  Company Number: CH-ROCHE-1438108

PATIENT
  Sex: Male

DRUGS (10)
  1. FLUDARABINE [Suspect]
     Active Substance: FLUDARABINE PHOSPHATE
     Indication: CHRONIC LYMPHOCYTIC LEUKAEMIA
     Route: 065
     Dates: start: 200809, end: 200901
  2. SPIRICORT [Concomitant]
     Active Substance: PREDNISOLONE
     Indication: DISEASE PROGRESSION
     Route: 065
     Dates: start: 200804, end: 200807
  3. MABCAMPATH [Concomitant]
     Active Substance: ALEMTUZUMAB
     Indication: DISEASE PROGRESSION
     Route: 065
     Dates: start: 20140224, end: 20140407
  4. MABTHERA [Suspect]
     Active Substance: RITUXIMAB
     Indication: CHRONIC LYMPHOCYTIC LEUKAEMIA
     Route: 065
     Dates: start: 200809, end: 200901
  5. CYCLOPHOSPHAMIDE. [Suspect]
     Active Substance: CYCLOPHOSPHAMIDE
     Indication: CHRONIC LYMPHOCYTIC LEUKAEMIA
     Route: 065
     Dates: start: 200809, end: 200901
  6. SPIRICORT [Concomitant]
     Active Substance: PREDNISOLONE
     Indication: PANCYTOPENIA
     Route: 065
     Dates: start: 20140502
  7. PRIVIGEN [Concomitant]
     Active Substance: HUMAN IMMUNOGLOBULIN G
     Indication: HYPOGAMMAGLOBULINAEMIA
     Route: 065
     Dates: start: 20120507
  8. MABTHERA [Suspect]
     Active Substance: RITUXIMAB
     Route: 065
     Dates: start: 20110526, end: 20111124
  9. ARZERRA [Concomitant]
     Active Substance: OFATUMUMAB
     Indication: DISEASE PROGRESSION
     Route: 065
     Dates: start: 20131007, end: 20131125
  10. BENDAMUSTINE [Suspect]
     Active Substance: BENDAMUSTINE
     Indication: CHRONIC LYMPHOCYTIC LEUKAEMIA
     Route: 065
     Dates: start: 20110526, end: 20111124

REACTIONS (8)
  - Anaemia [Unknown]
  - Pancytopenia [Unknown]
  - Pulmonary vasculitis [Unknown]
  - Acute myocardial infarction [Unknown]
  - Pulmonary embolism [Unknown]
  - Hypogammaglobulinaemia [Unknown]
  - Disease progression [Not Recovered/Not Resolved]
  - Coronary artery disease [Unknown]

NARRATIVE: CASE EVENT DATE: 201005
